FAERS Safety Report 22044097 (Version 2)
Quarter: 2023Q2

REPORT INFORMATION
  Report Type: Spontaneous
  Country: US (occurrence: US)
  Receive Date: 20230228
  Receipt Date: 20230518
  Transmission Date: 20230722
  Serious: No
  Sender: FDA-Public Use
  Company Number: US-BRISTOL-MYERS SQUIBB COMPANY-2023-028829

PATIENT
  Age: 71 Year
  Sex: Female

DRUGS (1)
  1. LENALIDOMIDE [Suspect]
     Active Substance: LENALIDOMIDE
     Indication: Plasma cell myeloma
     Dosage: 21 DAYS THEN OFF FOR 7DAYS FOR 28DAY CYCLE
     Route: 048
     Dates: start: 20221109

REACTIONS (2)
  - Muscle spasms [Not Recovered/Not Resolved]
  - Sinusitis [Recovering/Resolving]
